FAERS Safety Report 23727361 (Version 3)
Quarter: 2024Q2

REPORT INFORMATION
  Report Type: Spontaneous
  Country: US (occurrence: US)
  Receive Date: 20240410
  Receipt Date: 20240429
  Transmission Date: 20240716
  Serious: Yes (Other)
  Sender: FDA-Public Use
  Company Number: US-ELI_LILLY_AND_COMPANY-US202404001476

PATIENT
  Age: 41 Year
  Sex: Female
  Weight: 77.1 kg

DRUGS (6)
  1. OLUMIANT [Suspect]
     Active Substance: BARICITINIB
     Indication: Alopecia areata
     Dosage: 2 MG, DAILY
     Route: 065
     Dates: start: 20230102
  2. OLUMIANT [Suspect]
     Active Substance: BARICITINIB
     Indication: Androgenetic alopecia
  3. OLUMIANT [Suspect]
     Active Substance: BARICITINIB
     Indication: Alopecia areata
     Dosage: 4 MG, DAILY
     Route: 065
     Dates: start: 202305, end: 20240401
  4. OLUMIANT [Suspect]
     Active Substance: BARICITINIB
     Indication: Androgenetic alopecia
  5. DESOGESTREL [Concomitant]
     Active Substance: DESOGESTREL
     Indication: Product used for unknown indication
  6. ETHINYL ESTRADIOL [Concomitant]
     Active Substance: ETHINYL ESTRADIOL
     Indication: Product used for unknown indication

REACTIONS (3)
  - Deep vein thrombosis [Recovered/Resolved]
  - Body mass index increased [Recovered/Resolved]
  - Platelet count increased [Recovered/Resolved]

NARRATIVE: CASE EVENT DATE: 20231001
